FAERS Safety Report 24670249 (Version 1)
Quarter: 2024Q4

REPORT INFORMATION
  Report Type: Spontaneous
  Country: IT (occurrence: IT)
  Receive Date: 20241127
  Receipt Date: 20241127
  Transmission Date: 20250115
  Serious: Yes (Hospitalization)
  Sender: TEVA
  Company Number: None

PATIENT
  Age: 90 Year
  Sex: Female

DRUGS (7)
  1. AMOXICILLIN\CLAVULANIC ACID [Suspect]
     Active Substance: AMOXICILLIN\CLAVULANIC ACID
     Indication: Antibiotic prophylaxis
     Route: 048
     Dates: start: 202409, end: 20240909
  2. EPARINA [Concomitant]
     Indication: Thrombosis prophylaxis
     Route: 065
     Dates: start: 19700101, end: 20240909
  3. PANTOPRAZOLE SODIUM [Concomitant]
     Active Substance: PANTOPRAZOLE SODIUM
     Indication: Product used for unknown indication
     Route: 048
  4. DOBETIN [Concomitant]
     Indication: Vitamin B12 deficiency
     Dosage: 1000 MCG 1 INJECTION I.M./MONTH
     Route: 030
  5. LASIX [Concomitant]
     Active Substance: FUROSEMIDE
     Indication: Hypertension
     Dosage: TIME INTERVAL: 0.33333333 WEEKS: 1 CP 12PM (MON-WED-FRI)
     Route: 048
  6. BISOPROLOL FUMARATE [Concomitant]
     Active Substance: BISOPROLOL FUMARATE
     Indication: Hypertension
     Route: 048
  7. FOLINA [Concomitant]
     Indication: Folate deficiency
     Route: 048

REACTIONS (5)
  - Erythema [Unknown]
  - Rash macular [Unknown]
  - Urticaria [Unknown]
  - Rash pruritic [Unknown]
  - Adverse reaction [Unknown]

NARRATIVE: CASE EVENT DATE: 20240913
